FAERS Safety Report 7811756-X (Version None)
Quarter: 2011Q4

REPORT INFORMATION
  Report Type: 
  Country: None (occurrence: None)
  Receive Date: 20111013
  Receipt Date: 20110929
  Transmission Date: 20120403
  Serious: Yes (Hospitalization)
  Sender: FDA-Public Use
  Company Number: US-ELI_LILLY_AND_COMPANY-US201006004209

PATIENT
  Sex: Female

DRUGS (3)
  1. PLAVIX [Concomitant]
     Dosage: UNK, UNKNOWN
  2. FORTEO [Suspect]
     Indication: OSTEOPOROSIS
     Dosage: 20 UG, QD
     Route: 065
     Dates: start: 20100519
  3. FORTEO [Suspect]
     Dosage: 20 UG, QD
     Route: 065

REACTIONS (5)
  - OEDEMA PERIPHERAL [None]
  - PARKINSON'S DISEASE [None]
  - INJECTION SITE HAEMATOMA [None]
  - TREMOR [None]
  - DIABETES MELLITUS [None]
